FAERS Safety Report 4424718-X (Version None)
Quarter: 2004Q3

REPORT INFORMATION
  Report Type: 
  Country: None (occurrence: None)
  Receive Date: 20040805
  Receipt Date: 20040727
  Transmission Date: 20050211
  Serious: Yes (Other)
  Sender: FDA-Public Use
  Company Number: HQWYE966909JUL04

PATIENT
  Age: 41 Year
  Sex: Female

DRUGS (5)
  1. ALESSE [Suspect]
     Indication: CONTRACEPTION
     Dosage: 1 TABLET 1X PER 1 DAY  ORAL
     Route: 048
     Dates: start: 20040618, end: 20040701
  2. ALTACE [Suspect]
     Indication: HYPERTENSION
     Dosage: 2 TABLETS ORAL  ; 1 (5MG)  ORAL
     Route: 048
     Dates: start: 20030618, end: 20040617
  3. ALTACE [Suspect]
     Indication: HYPERTENSION
     Dosage: 2 TABLETS ORAL  ; 1 (5MG)  ORAL
     Route: 048
     Dates: start: 20040618
  4. FLONASE [Concomitant]
  5. HYDROCHLOROTHIAZIDE [Concomitant]

REACTIONS (4)
  - ANAEMIA [None]
  - BLOOD PRESSURE INCREASED [None]
  - DRUG INTERACTION [None]
  - MENOMETRORRHAGIA [None]
